FAERS Safety Report 15152967 (Version 1)
Quarter: 2018Q3

REPORT INFORMATION
  Report Type: Spontaneous
  Country: US (occurrence: US)
  Receive Date: 20180717
  Receipt Date: 20180717
  Transmission Date: 20181010
  Serious: No
  Sender: FDA-Public Use
  Company Number: US-GLENMARK PHARMACEUTICALS-2018GMK035618

PATIENT

DRUGS (1)
  1. MOMETASONE FUROATE CREAM USP [Suspect]
     Active Substance: MOMETASONE FUROATE
     Indication: ERYTHEMA
     Dosage: UNK
     Route: 061
     Dates: start: 20180430

REACTIONS (2)
  - Drug effect incomplete [Unknown]
  - Product use in unapproved indication [Unknown]
